FAERS Safety Report 4730901-6 (Version None)
Quarter: 2005Q3

REPORT INFORMATION
  Report Type: 
  Country: None (occurrence: None)
  Receive Date: 20050719
  Receipt Date: 20050603
  Transmission Date: 20060218
  Serious: Yes (Other)
  Sender: FDA-Public Use
  Company Number: US-2005-009697

PATIENT
  Sex: Male

DRUGS (1)
  1. ULTRAVIST (PHARMACY BULK) [Suspect]
     Indication: COMPUTERISED TOMOGRAM ABDOMEN
     Dosage: 110 ML, 1 DOSE, INTRAVENOUS
     Route: 042
     Dates: start: 20050602, end: 20050602

REACTIONS (1)
  - URTICARIA GENERALISED [None]
